FAERS Safety Report 13588335 (Version 1)
Quarter: 2017Q2

REPORT INFORMATION
  Report Type: Report from Study
  Country: None (occurrence: BR)
  Receive Date: 20170528
  Receipt Date: 20170528
  Transmission Date: 20170830
  Serious: Yes (Other)
  Sender: FDA-Public Use
  Company Number: BR-ABBVIE-17K-020-1985530-00

PATIENT
  Age: 56 Year
  Sex: Female
  Weight: 75 kg

DRUGS (7)
  1. VITAMIN C [Concomitant]
     Active Substance: ASCORBIC ACID
     Indication: VITAMIN SUPPLEMENTATION
     Route: 048
     Dates: start: 20170520
  2. YELLOW FEVER VACCINE NOS [Suspect]
     Active Substance: YELLOW FEVER VIRUS STRAIN 17D-204 LIVE ANTIGEN
     Indication: PRODUCT USED FOR UNKNOWN INDICATION
     Route: 065
     Dates: start: 20170128
  3. FOLIC ACID. [Concomitant]
     Active Substance: FOLIC ACID
     Indication: PRODUCT USED FOR UNKNOWN INDICATION
     Dosage: 1 TABLET EVERY DAY EXCEPT ON THURSDAYS
     Route: 048
     Dates: start: 2002
  4. LEVOFLOXACIN. [Suspect]
     Active Substance: LEVOFLOXACIN
     Indication: RESPIRATORY TRACT INFECTION
     Route: 048
     Dates: start: 20170520
  5. CRANBERRY. [Concomitant]
     Active Substance: CRANBERRY
     Indication: PROPHYLAXIS URINARY TRACT INFECTION
     Route: 048
     Dates: start: 2015
  6. METHOTREXATE. [Concomitant]
     Active Substance: METHOTREXATE
     Indication: PRODUCT USED FOR UNKNOWN INDICATION
     Route: 048
     Dates: start: 2015
  7. HUMIRA [Suspect]
     Active Substance: ADALIMUMAB
     Indication: ANKYLOSING SPONDYLITIS
     Route: 058
     Dates: start: 20141215, end: 20170509

REACTIONS (13)
  - Mass [Not Recovered/Not Resolved]
  - Asthenia [Unknown]
  - Memory impairment [Unknown]
  - Decreased appetite [Not Recovered/Not Resolved]
  - Wheezing [Not Recovered/Not Resolved]
  - Pneumonia [Not Recovered/Not Resolved]
  - Fatigue [Not Recovered/Not Resolved]
  - Food allergy [Not Recovered/Not Resolved]
  - Laryngeal oedema [Unknown]
  - Headache [Recovered/Resolved]
  - Respiratory tract infection [Not Recovered/Not Resolved]
  - Immunodeficiency [Not Recovered/Not Resolved]
  - Weight decreased [Not Recovered/Not Resolved]

NARRATIVE: CASE EVENT DATE: 201611
